FAERS Safety Report 12485439 (Version 1)
Quarter: 2016Q2

REPORT INFORMATION
  Report Type: Spontaneous
  Country: US (occurrence: US)
  Receive Date: 20160621
  Receipt Date: 20160621
  Transmission Date: 20160815
  Serious: No
  Sender: FDA-Public Use
  Company Number: US-SA-2015SA108352

PATIENT
  Age: 24 Month
  Sex: Male
  Weight: 10.89 kg

DRUGS (10)
  1. PROAIR HFA [Concomitant]
     Active Substance: ALBUTEROL SULFATE
     Dosage: 90 MCG. 1DOSE AS DIRECTED
     Dates: start: 20150706
  2. HEPARIN [Concomitant]
     Active Substance: HEPARIN SODIUM
     Dosage: 10 UNITS/ML, 1 DOSE AS DIRECTED
     Dates: start: 20150624
  3. SODIUM CHLORIDE. [Concomitant]
     Active Substance: SODIUM CHLORIDE
     Dosage: 0.9%, AS DIRECTED
     Dates: start: 20150624
  4. EPIPEN [Concomitant]
     Active Substance: EPINEPHRINE
     Indication: ANAPHYLACTIC REACTION
     Dosage: AS DIRECTED
     Dates: start: 20150624
  5. AMOXICILLIN. [Concomitant]
     Active Substance: AMOXICILLIN
     Dosage: 250 MG/5 ML SUSPENSION AS DIRECTED
     Dates: start: 20150706
  6. FLOVENT [Concomitant]
     Active Substance: FLUTICASONE PROPIONATE
     Dosage: 44 MCG , 1 DOSE AS DIRECTED
     Dates: start: 20150706
  7. SINGULAIR [Concomitant]
     Active Substance: MONTELUKAST SODIUM
     Dosage: 4 MG TAB CHEW, 1 DOSE AS DIRECTED
     Dates: start: 20150706
  8. CEREZYME [Suspect]
     Active Substance: IMIGLUCERASE
     Indication: LIPIDOSIS
     Dosage: DOSE:800 UNIT(S)
     Route: 041
     Dates: start: 20150624
  9. NORMAL SALINE [Concomitant]
     Active Substance: SODIUM CHLORIDE
     Indication: MEDICATION DILUTION
     Dosage: AS DIRECTED
     Dates: start: 20150624
  10. WATER FOR INJECTION [Concomitant]
     Active Substance: WATER
     Dosage: AS DIRECTED
     Dates: start: 20150624

REACTIONS (4)
  - Lethargy [Unknown]
  - Heart rate increased [Unknown]
  - Pyrexia [Unknown]
  - Respiratory rate increased [Unknown]
